FAERS Safety Report 13303675 (Version 2)
Quarter: 2017Q1

REPORT INFORMATION
  Report Type: Spontaneous
  Country: IT (occurrence: IT)
  Receive Date: 20170307
  Receipt Date: 20170309
  Transmission Date: 20170428
  Serious: Yes (Other)
  Sender: FDA-Public Use
  Company Number: PHHY2017IT030315

PATIENT
  Age: 46 Year
  Sex: Female
  Weight: 80 kg

DRUGS (3)
  1. DECAPEPTYL [Concomitant]
     Active Substance: TRIPTORELIN
     Indication: ADJUVANT THERAPY
     Dosage: 3.75 MG, UNK
     Route: 058
  2. DOCETAXEL SANDOZ [Suspect]
     Active Substance: DOCETAXEL
     Indication: BREAST CANCER
     Dosage: 143 MG, CYCLIC
     Route: 040
     Dates: start: 20170202, end: 20170223
  3. ENDOXAN [Suspect]
     Active Substance: CYCLOPHOSPHAMIDE
     Indication: BREAST CANCER
     Dosage: 1146 MG, CYCLIC
     Route: 040
     Dates: start: 20170202

REACTIONS (3)
  - Stomatitis [Recovered/Resolved]
  - Neutropenia [Recovered/Resolved]
  - Folliculitis [Recovered/Resolved]

NARRATIVE: CASE EVENT DATE: 20170209
